FAERS Safety Report 23329489 (Version 2)
Quarter: 2024Q1

REPORT INFORMATION
  Report Type: Spontaneous
  Country: US (occurrence: US)
  Receive Date: 20231222
  Receipt Date: 20240115
  Transmission Date: 20240409
  Serious: No
  Sender: FDA-Public Use
  Company Number: US-AMGEN-USASP2023226448

PATIENT
  Age: 64 Year
  Sex: Female

DRUGS (1)
  1. TAVNEOS [Suspect]
     Active Substance: AVACOPAN
     Indication: Granulomatosis with polyangiitis
     Dosage: 1 DOSAGE FORM, BID (10 MILLIGRAM CAPSULE)
     Route: 065
     Dates: start: 20231214

REACTIONS (6)
  - Urinary tract pain [Unknown]
  - Bone swelling [Unknown]
  - Intentional product misuse [Unknown]
  - Fatigue [Unknown]
  - Headache [Unknown]
  - Nausea [Unknown]

NARRATIVE: CASE EVENT DATE: 20231201
